FAERS Safety Report 10477464 (Version 2)
Quarter: 2014Q3

REPORT INFORMATION
  Report Type: Spontaneous
  Country: DE (occurrence: DE)
  Receive Date: 20140926
  Receipt Date: 20140926
  Transmission Date: 20150326
  Serious: Yes (Other)
  Sender: FDA-Public Use
  Company Number: DE-AUROBINDO-AUR-APL-2014-09130

PATIENT
  Age: 81 Year
  Sex: Female

DRUGS (7)
  1. RAMIPRIL-ISIS 5 MG TABLETS [Suspect]
     Active Substance: RAMIPRIL
     Indication: HYPERTENSION
     Dosage: (2.5 MG, TWO TIMES A DAY) (1/2 OF 5MG TABLET IN THE MORNING AND 1/2 IN THE EVENING)
     Route: 065
     Dates: start: 20140808
  2. SIMVASTATIN. [Concomitant]
     Active Substance: SIMVASTATIN
     Indication: PRODUCT USED FOR UNKNOWN INDICATION
     Dosage: 40 (0-0-1)
     Route: 065
  3. ARCOXIA [Concomitant]
     Active Substance: ETORICOXIB
     Indication: PRODUCT USED FOR UNKNOWN INDICATION
     Dosage: 90 AS REQUIRED
     Route: 065
  4. ORNITHINE ASPARTATE [Concomitant]
     Active Substance: ORNITHINE ASPARTATE
     Indication: LIVER DISORDER
     Dosage: 3000
     Route: 065
  5. PANTOPRAZOLE [Concomitant]
     Active Substance: PANTOPRAZOLE SODIUM
     Indication: PRODUCT USED FOR UNKNOWN INDICATION
     Dosage: 40 (1-0-)
     Route: 065
  6. LYRICA [Concomitant]
     Active Substance: PREGABALIN
     Indication: PRODUCT USED FOR UNKNOWN INDICATION
     Dosage: 150 (1/2 - 1/2)
     Route: 065
  7. RAMIPRIL. [Concomitant]
     Active Substance: RAMIPRIL
     Indication: PRODUCT USED FOR UNKNOWN INDICATION
     Dosage: 5 MG, (1/2 TABLET IN THE MORNING AND 1/2 TABLET IN THE EVENING)
     Route: 065

REACTIONS (4)
  - Blood pressure inadequately controlled [Not Recovered/Not Resolved]
  - Ocular discomfort [Recovered/Resolved]
  - Dyspnoea [Recovered/Resolved]
  - Headache [Recovered/Resolved]

NARRATIVE: CASE EVENT DATE: 20140810
